FAERS Safety Report 6655336-0 (Version None)
Quarter: 2010Q1

REPORT INFORMATION
  Report Type: 
  Country: None (occurrence: None)
  Receive Date: 20100329
  Receipt Date: 20100315
  Transmission Date: 20100710
  Serious: No
  Sender: FDA-Public Use
  Company Number: PHHY2010US15746

PATIENT
  Sex: Male

DRUGS (16)
  1. TASIGNA [Suspect]
     Dosage: 200 MG, BID
     Dates: start: 20100308
  2. FUROSEMIDE [Concomitant]
     Dosage: 40 MG, UNK
  3. GABAPENTIN [Concomitant]
     Dosage: 600 MG, UNK
  4. WARFARIN SODIUM [Concomitant]
     Dosage: 7.5 MG, UNK
  5. WARFARIN SODIUM [Concomitant]
     Dosage: 5 MG, UNK
  6. CEFUROXIME SODIUM [Concomitant]
     Dosage: 250 MG, UNK
  7. BACLOFEN [Concomitant]
     Dosage: 10 MG, UNK
  8. DILTIAZEM HCL [Concomitant]
     Dosage: 100 MG, UNK
  9. DOXAZOSIN [Concomitant]
     Dosage: 4 MG, UNK
  10. FOLIC ACID [Concomitant]
     Dosage: 1 MG, UNK
  11. DIGOXIN [Concomitant]
     Dosage: 0.25 MG, UNK
  12. TRICOR [Concomitant]
     Dosage: 145 MG, UNK
  13. PACERONE [Concomitant]
     Dosage: 200 MG, UNK
  14. ADVAIR DISKUS 100/50 [Concomitant]
  15. INSULIN [Concomitant]
  16. NOVOLOG [Concomitant]
     Dosage: 70/30 MG

REACTIONS (3)
  - ABDOMINAL PAIN UPPER [None]
  - BLOOD GLUCOSE INCREASED [None]
  - HYPERTENSION [None]
